FAERS Safety Report 5020800-7 (Version None)
Quarter: 2006Q2

REPORT INFORMATION
  Report Type: 
  Country: None (occurrence: None)
  Receive Date: 20060608
  Receipt Date: 20060601
  Transmission Date: 20061013
  Serious: Yes (Hospitalization)
  Sender: FDA-Public Use
  Company Number: PHEH2006US07180

PATIENT
  Age: 10 Year
  Sex: Male

DRUGS (3)
  1. EXJADE [Suspect]
     Indication: BLOOD IRON INCREASED
     Dosage: 500 MG, QD
     Dates: start: 20060401, end: 20060531
  2. FOLIC ACID [Concomitant]
     Dosage: 1 MG, UNK
  3. PENICILLIN VK [Concomitant]
     Indication: PROPHYLAXIS
     Dosage: 250 MG, BID

REACTIONS (9)
  - ALANINE AMINOTRANSFERASE INCREASED [None]
  - ASPARTATE AMINOTRANSFERASE INCREASED [None]
  - CARDIOMYOPATHY [None]
  - DEHYDRATION [None]
  - LEUKOCYTOSIS [None]
  - LIVER FUNCTION TEST ABNORMAL [None]
  - MALAISE [None]
  - PYREXIA [None]
  - WHITE BLOOD CELL COUNT INCREASED [None]
